FAERS Safety Report 8948325 (Version 2)
Quarter: 2012Q4

REPORT INFORMATION
  Report Type: Spontaneous
  Country: JP (occurrence: None)
  Receive Date: 20121126
  Receipt Date: 20121128
  Transmission Date: 20130627
  Serious: Yes (Death)
  Sender: FDA-Public Use
  Company Number: JP-CLINIGEN HEALTHCARE LIMITED-003014

PATIENT
  Age: 26 Year
  Sex: Male

DRUGS (9)
  1. FOSCAVIR [Suspect]
     Indication: HUMAN HERPESVIRUS  6  INFECTION
     Dosage: 1   Intravenous drip
     Route: 041
     Dates: start: 20120412, end: 20120515
  2. AMBISOME [Concomitant]
  3. THIAMYLAL (THIAMYLAL) [Concomitant]
  4. ALEVIATIN (ALEVIATIN) [Concomitant]
  5. FUNGUARD (FUNGUARD) [Concomitant]
  6. PREDNISOLONE (PREDNISOLONE) [Concomitant]
  7. SANDIMMUN (SANDIMMUN) [Concomitant]
  8. PHENOBARTITAL SODIUM (PHENOBARBITAL SODIUM) [Concomitant]
  9. DENOSINE (DENOSINE) [Concomitant]

REACTIONS (15)
  - Multi-organ failure [None]
  - Aspartate aminotransferase increased [None]
  - Alanine aminotransferase increased [None]
  - Blood lactate dehydrogenase increased [None]
  - Blood alkaline phosphatase [None]
  - Blood creatinine increased [None]
  - Blood bilirubin increased [None]
  - Blood urea increased [None]
  - White blood cell count increased [None]
  - Haemoglobin decreased [None]
  - Platelet count decreased [None]
  - Red blood cell count decreased [None]
  - Haematocrit decreased [None]
  - Troponin increased [None]
  - Blood albumin decreased [None]
